FAERS Safety Report 5534640-3 (Version None)
Quarter: 2007Q4

REPORT INFORMATION
  Report Type: 
  Country: None (occurrence: None)
  Receive Date: 20071205
  Receipt Date: 20071128
  Transmission Date: 20080405
  Serious: Yes (Hospitalization, Other)
  Sender: FDA-Public Use
  Company Number: PHBS2007TR20010

PATIENT
  Age: 49 Year
  Sex: Female

DRUGS (2)
  1. CATAFLAM [Suspect]
     Indication: LUMBAR HERNIA
     Dates: start: 20070601
  2. VOLTAREN [Suspect]

REACTIONS (2)
  - EPILEPSY [None]
  - HYPERSENSITIVITY [None]
